FAERS Safety Report 4925635-9 (Version None)
Quarter: 2006Q1

REPORT INFORMATION
  Report Type: 
  Country: None (occurrence: None)
  Receive Date: 20060228
  Receipt Date: 20050112
  Transmission Date: 20060701
  Serious: No
  Sender: FDA-Public Use
  Company Number: US-GLAXOSMITHKLINE-A0540432A

PATIENT
  Age: 42 Year
  Sex: Female

DRUGS (4)
  1. LAMICTAL [Suspect]
     Indication: BIPOLAR DISORDER
     Dosage: 50MG PER DAY
     Route: 048
     Dates: start: 20041101
  2. EFFEXOR [Concomitant]
  3. LITHIUM [Concomitant]
  4. TRAZODONE [Concomitant]

REACTIONS (3)
  - DIPLOPIA [None]
  - DIZZINESS [None]
  - VISION BLURRED [None]
